FAERS Safety Report 7969513-X (Version None)
Quarter: 2011Q4

REPORT INFORMATION
  Report Type: 
  Country: None (occurrence: None)
  Receive Date: 20111212
  Receipt Date: 20111209
  Transmission Date: 20120403
  Serious: No
  Sender: FDA-Public Use
  Company Number: US-BIOGENIDEC-2011BI046688

PATIENT
  Age: 62 Year
  Sex: Female

DRUGS (2)
  1. AVONEX [Suspect]
     Indication: MULTIPLE SCLEROSIS
     Route: 030
     Dates: start: 20110529
  2. AVONEX [Suspect]
     Route: 030
     Dates: start: 20100405, end: 20100924

REACTIONS (3)
  - ROAD TRAFFIC ACCIDENT [None]
  - PAIN IN EXTREMITY [None]
  - BACK PAIN [None]
